FAERS Safety Report 7218319-8 (Version None)
Quarter: 2011Q1

REPORT INFORMATION
  Report Type: 
  Country: None (occurrence: None)
  Receive Date: 20110110
  Receipt Date: 20100108
  Transmission Date: 20110831
  Serious: No
  Sender: FDA-Public Use
  Company Number: US-BRISTOL-MYERS SQUIBB COMPANY-14922546

PATIENT
  Age: 62 Year
  Sex: Female
  Weight: 50 kg

DRUGS (5)
  1. AMBIEN [Suspect]
  2. MICARDIS [Concomitant]
  3. IRON [Concomitant]
  4. TRAZODONE HCL [Suspect]
     Route: 048
     Dates: end: 20100104
  5. ORENCIA [Suspect]
     Indication: RHEUMATOID ARTHRITIS
     Dosage: NO OF INFUSIONS 3, 3RD INF 05-JAN-2010

REACTIONS (1)
  - TREMOR [None]
